FAERS Safety Report 7557292-X (Version None)
Quarter: 2011Q2

REPORT INFORMATION
  Report Type: 
  Country: None (occurrence: None)
  Receive Date: 20110620
  Receipt Date: 20081022
  Transmission Date: 20111010
  Serious: Yes (Death, Other)
  Sender: FDA-Public Use
  Company Number: PHHY2008US18284

PATIENT
  Sex: Male
  Weight: 87 kg

DRUGS (1)
  1. EXJADE [Suspect]
     Dosage: 3000 MG, QD
     Route: 048
     Dates: start: 20080620

REACTIONS (4)
  - FALL [None]
  - PNEUMONIA [None]
  - HIP FRACTURE [None]
  - ATRIAL FIBRILLATION [None]
